FAERS Safety Report 6085571-4 (Version None)
Quarter: 2009Q1

REPORT INFORMATION
  Report Type: 
  Country: None (occurrence: None)
  Receive Date: 20090220
  Receipt Date: 20090127
  Transmission Date: 20090719
  Serious: Yes (Hospitalization, Other)
  Sender: FDA-Public Use
  Company Number: US-PFIZER INC-2008067002

PATIENT
  Sex: Male
  Weight: 99.79 kg

DRUGS (10)
  1. LIPITOR [Suspect]
     Route: 048
     Dates: start: 19980101
  2. LYRICA [Suspect]
     Route: 048
     Dates: start: 19980101
  3. DAYPRO [Suspect]
     Route: 048
     Dates: end: 20080731
  4. NEURONTIN [Suspect]
  5. CARDURA [Suspect]
  6. TEVETEN HCT [Suspect]
     Dosage: 600MG/12.5MG BID EVERY DAY TDD:1200MG/2
     Dates: end: 20080731
  7. ZANTAC [Suspect]
     Dates: end: 20080731
  8. ZETIA [Suspect]
     Indication: BLOOD CHOLESTEROL INCREASED
     Dates: end: 20080731
  9. TOPROL-XL [Concomitant]
  10. TRICOR [Concomitant]

REACTIONS (5)
  - FALL [None]
  - HEAD DISCOMFORT [None]
  - LOSS OF CONSCIOUSNESS [None]
  - MOVEMENT DISORDER [None]
  - RENAL FAILURE [None]
